FAERS Safety Report 15375448 (Version 1)
Quarter: 2018Q3

REPORT INFORMATION
  Report Type: Spontaneous
  Country: JP (occurrence: JP)
  Receive Date: 20180912
  Receipt Date: 20180912
  Transmission Date: 20181010
  Serious: Yes (Other)
  Sender: FDA-Public Use
  Company Number: JP-SA-2018SA216386

PATIENT
  Age: 61 Year
  Sex: Male

DRUGS (4)
  1. ELPLAT [Suspect]
     Active Substance: OXALIPLATIN
     Indication: COLON CANCER
     Dosage: 130 MG/M2, QD
     Route: 041
     Dates: start: 20180531
  2. ELPLAT [Suspect]
     Active Substance: OXALIPLATIN
     Dosage: 100 MG/M2, UNK
     Route: 041
  3. TS?1 [Concomitant]
     Active Substance: GIMERACIL\OTERACIL\TEGAFUR
     Dosage: UNK
     Dates: start: 20180531
  4. VECTIBIX [Concomitant]
     Active Substance: PANITUMUMAB
     Dosage: UNK
     Dates: start: 20180531

REACTIONS (1)
  - Platelet count decreased [Not Recovered/Not Resolved]

NARRATIVE: CASE EVENT DATE: 20180712
